FAERS Safety Report 4360721-6 (Version None)
Quarter: 2004Q2

REPORT INFORMATION
  Report Type: 
  Country: None (occurrence: None)
  Receive Date: 20040514
  Receipt Date: 20040510
  Transmission Date: 20050107
  Serious: Yes (Death)
  Sender: FDA-Public Use
  Company Number: TIF2004A00021

PATIENT
  Age: 83 Year
  Sex: Male

DRUGS (7)
  1. LEUPRORELIN DEPOT (LEUPROLIDE ACETATE) [Suspect]
     Indication: PROSTATE CANCER
     Dosage: 3.75 MG, 1 IN 28 D
     Dates: start: 20020903, end: 20040218
  2. FLUTAMIDE [Suspect]
     Indication: PROSTATE CANCER
     Dosage: 2 IN 1 D
     Route: 048
     Dates: start: 20020903, end: 20040218
  3. DIGOXIN (DIGOXIN) TABLETS [Concomitant]
  4. OXYCONTIN (OXYCODONE HYDROCHLORIDE) (TABLETS) [Concomitant]
  5. TRITACE (RAMIPRIL) (TABLETS) [Concomitant]
  6. CORVATON (MOLSIDOMINE) (TABLETS) [Concomitant]
  7. CIPHIN (CIPROFLOXACIN HYDROCHLORIDE) (TABLETS) [Concomitant]

REACTIONS (3)
  - BRONCHOPNEUMONIA [None]
  - HYPERTENSION [None]
  - MYOCARDIAL ISCHAEMIA [None]
